FAERS Safety Report 9057561 (Version 1)
Quarter: 2013Q1

REPORT INFORMATION
  Report Type: Spontaneous
  Country: US (occurrence: None)
  Receive Date: 20130204
  Receipt Date: 20130204
  Transmission Date: 20140127
  Serious: Yes (Hospitalization)
  Sender: FDA-Public Use
  Company Number: None

PATIENT
  Age: 75 Year
  Sex: Female
  Weight: 59.88 kg

DRUGS (2)
  1. SULFAMETHOXAZOLE + TRIMETHOPRIM [Suspect]
     Dosage: 2 DAILY PO
     Route: 048
     Dates: start: 20121017, end: 20121020
  2. NITROFURANTOIN MONOHYDRATE [Suspect]
     Dosage: 2 DAILY PO
     Route: 048
     Dates: start: 20121017, end: 20121020

REACTIONS (4)
  - Haemorrhage [None]
  - Fall [None]
  - Muscle injury [None]
  - Haematoma [None]
